FAERS Safety Report 5263471-7 (Version None)
Quarter: 2007Q1

REPORT INFORMATION
  Report Type: 
  Country: None (occurrence: None)
  Receive Date: 20070313
  Receipt Date: 20070228
  Transmission Date: 20070707
  Serious: Yes (Hospitalization)
  Sender: FDA-Public Use
  Company Number: PHNR2007AU00764

PATIENT
  Age: 68 Year
  Sex: Male

DRUGS (1)
  1. TEGRETOL [Suspect]
     Indication: EPILEPSY
     Dosage: 800MG DAILY
     Route: 048

REACTIONS (6)
  - BLOOD PRESSURE INCREASED [None]
  - COORDINATION ABNORMAL [None]
  - DRUG LEVEL ABOVE THERAPEUTIC [None]
  - DYSPHAGIA [None]
  - HYPONATRAEMIA [None]
  - PHOTOPHOBIA [None]
